FAERS Safety Report 6066139-2 (Version None)
Quarter: 2009Q1

REPORT INFORMATION
  Report Type: 
  Country: None (occurrence: None)
  Receive Date: 20090205
  Receipt Date: 20090202
  Transmission Date: 20090719
  Serious: Yes (Death)
  Sender: FDA-Public Use
  Company Number: US-ASTRAZENECA-2009UW02898

PATIENT
  Age: 32 Year
  Sex: Male

DRUGS (6)
  1. SEROQUEL [Suspect]
     Dosage: 8 TO 15 TABLETS
     Route: 048
  2. ALCOHOL [Suspect]
  3. SERTRALINE [Suspect]
  4. ACYCLOVIR [Concomitant]
  5. TYLENOL [Concomitant]
  6. ADVAIR DISKUS 100/50 [Concomitant]

REACTIONS (1)
  - INTENTIONAL OVERDOSE [None]
